FAERS Safety Report 15390444 (Version 1)
Quarter: 2018Q3

REPORT INFORMATION
  Report Type: Report from Study
  Country: CN (occurrence: CN)
  Receive Date: 20180917
  Receipt Date: 20180917
  Transmission Date: 20181010
  Serious: Yes (Other)
  Sender: FDA-Public Use
  Company Number: CN-INCYTE CORPORATION-2017IN010173

PATIENT

DRUGS (5)
  1. JAKAVI [Suspect]
     Active Substance: RUXOLITINIB
     Indication: PRIMARY MYELOFIBROSIS
     Dosage: 15 MG, BID
     Route: 048
  2. JAKAVI [Suspect]
     Active Substance: RUXOLITINIB
     Indication: POLYCYTHAEMIA VERA
     Dosage: 20 MG, BID
     Route: 048
     Dates: start: 20171105
  3. INTERFERON [Concomitant]
     Active Substance: INTERFERON
     Indication: PRIMARY MYELOFIBROSIS
     Dosage: UNK
     Route: 048
     Dates: start: 201805
  4. HYDROXYUREA. [Concomitant]
     Active Substance: HYDROXYUREA
     Indication: PRIMARY MYELOFIBROSIS
     Dosage: UNK
     Route: 048
     Dates: start: 201701
  5. JAKAVI [Suspect]
     Active Substance: RUXOLITINIB
     Indication: ESSENTIAL THROMBOCYTHAEMIA

REACTIONS (5)
  - Essential thrombocythaemia [Unknown]
  - Myelofibrosis [Unknown]
  - Acute myeloid leukaemia [Not Recovered/Not Resolved]
  - Asthenia [Unknown]
  - Polycythaemia vera [Unknown]

NARRATIVE: CASE EVENT DATE: 20180820
